FAERS Safety Report 6148262-7 (Version None)
Quarter: 2009Q2

REPORT INFORMATION
  Report Type: 
  Country: None (occurrence: None)
  Receive Date: 20090406
  Receipt Date: 20090327
  Transmission Date: 20091009
  Serious: Yes (Hospitalization)
  Sender: FDA-Public Use
  Company Number: 2009SP005103

PATIENT
  Age: 55 Year
  Sex: Male

DRUGS (4)
  1. TEMODAR [Suspect]
     Indication: MALIGNANT MELANOMA
     Dosage: 400 MG; QD
     Dates: start: 20080101, end: 20090201
  2. FLUOXETINE [Concomitant]
  3. ZOFRAN [Concomitant]
  4. PRILOSEC [Concomitant]

REACTIONS (4)
  - CENTRAL NERVOUS SYSTEM LESION [None]
  - CONDITION AGGRAVATED [None]
  - DRUG INEFFECTIVE [None]
  - VASOGENIC CEREBRAL OEDEMA [None]
